FAERS Safety Report 7789315-7 (Version None)
Quarter: 2011Q3

REPORT INFORMATION
  Report Type: 
  Country: None (occurrence: None)
  Receive Date: 20110930
  Receipt Date: 20110915
  Transmission Date: 20111222
  Serious: Yes (Hospitalization)
  Sender: FDA-Public Use
  Company Number: EC-GLAXOSMITHKLINE-A0945226A

PATIENT
  Age: 24 Year
  Sex: Female
  Weight: 52.3 kg

DRUGS (2)
  1. QUETIAPINE [Concomitant]
     Indication: BIPOLAR DISORDER
     Dosage: 200MG AT NIGHT
     Route: 048
     Dates: start: 20100101, end: 20110908
  2. LAMICTAL [Suspect]
     Indication: PETIT MAL EPILEPSY
     Dosage: 50MG TWICE PER DAY
     Route: 048

REACTIONS (12)
  - BRONCHITIS BACTERIAL [None]
  - DYSPNOEA [None]
  - RASH VESICULAR [None]
  - STEVENS-JOHNSON SYNDROME [None]
  - PYREXIA [None]
  - RASH [None]
  - SKIN LESION [None]
  - INTERSTITIAL LUNG DISEASE [None]
  - HAEMOPHILUS INFECTION [None]
  - COUGH [None]
  - SKIN EXFOLIATION [None]
  - RASH PUSTULAR [None]
